FAERS Safety Report 7525201-5 (Version None)
Quarter: 2011Q2

REPORT INFORMATION
  Report Type: 
  Country: None (occurrence: None)
  Receive Date: 20110602
  Receipt Date: 20110602
  Transmission Date: 20111010
  Serious: Yes (Death)
  Sender: FDA-Public Use
  Company Number: None

PATIENT
  Sex: Female
  Weight: 55.9 kg

DRUGS (15)
  1. EVEROLIMUS [Suspect]
     Indication: COLORECTAL CANCER
     Dosage: 10MG PO QD
     Route: 048
     Dates: start: 20110304, end: 20110512
  2. NYSTATIN [Concomitant]
  3. POTASSIUM CHLORIDE SLOW RELEASE TABLETS [Concomitant]
  4. MAGNESIUM GLUCONATE [Concomitant]
  5. PANTOPRAZOLE [Concomitant]
  6. TOBRADEX [Concomitant]
  7. TRAZODONE HCL [Concomitant]
  8. MOXIFLOXACIN OPTHALMIC [Concomitant]
  9. LOMOTIL [Concomitant]
  10. CELEXA [Concomitant]
  11. CYANOCOBALAMIN [Concomitant]
  12. ZOFRAN [Concomitant]
  13. AV-951 [Suspect]
     Indication: COLORECTAL CANCER
     Dosage: 1MG PO QD 3 WEEKS
     Route: 048
     Dates: start: 20110304, end: 20110513
  14. MEGACE [Concomitant]
  15. OXYCODONE HCL [Concomitant]

REACTIONS (2)
  - COLORECTAL CANCER METASTATIC [None]
  - NEOPLASM PROGRESSION [None]
